FAERS Safety Report 23347540 (Version 1)
Quarter: 2023Q4

REPORT INFORMATION
  Report Type: Spontaneous
  Country: RU (occurrence: RU)
  Receive Date: 20231228
  Receipt Date: 20231228
  Transmission Date: 20240110
  Serious: Yes (Other)
  Sender: FDA-Public Use
  Company Number: None

PATIENT
  Age: 39 Year
  Sex: Female

DRUGS (1)
  1. DESLORATADINE [Suspect]
     Active Substance: DESLORATADINE
     Indication: Seasonal allergy
     Dosage: 5 MG, QD
     Dates: start: 20220520, end: 20220525

REACTIONS (1)
  - Spinal pain [Recovered/Resolved]

NARRATIVE: CASE EVENT DATE: 20220521
